FAERS Safety Report 5141110-3 (Version None)
Quarter: 2006Q4

REPORT INFORMATION
  Report Type: 
  Country: None (occurrence: None)
  Receive Date: 20061101
  Receipt Date: 20061019
  Transmission Date: 20070319
  Serious: Yes (Hospitalization)
  Sender: FDA-Public Use
  Company Number: PHRM2006FR02872

PATIENT
  Age: 95 Year
  Sex: Female

DRUGS (4)
  1. LASIX [Suspect]
     Indication: HYPERTENSION
     Route: 048
     Dates: end: 20060831
  2. ASPIRIN [Concomitant]
  3. TAREG [Suspect]
     Indication: HYPERTENSION
     Dosage: 100 MG DAILY
     Route: 048
     Dates: end: 20060817
  4. TAREG [Suspect]
     Dosage: 160 MG DAILY
     Route: 048
     Dates: start: 20060818, end: 20060831

REACTIONS (6)
  - BLOOD GLUCOSE DECREASED [None]
  - DIZZINESS [None]
  - LOSS OF CONSCIOUSNESS [None]
  - MALAISE [None]
  - ORTHOSTATIC HYPOTENSION [None]
  - OXYGEN SATURATION DECREASED [None]
